FAERS Safety Report 16450078 (Version 1)
Quarter: 2019Q3

REPORT INFORMATION
  Report Type: Spontaneous
  Country: US (occurrence: US)
  Receive Date: 20190618
  Receipt Date: 20190618
  Transmission Date: 20191004
  Serious: Yes (Disabling)
  Sender: FDA-Public Use
  Company Number: None

PATIENT
  Age: 6 Year
  Sex: Male
  Weight: 22.5 kg

DRUGS (1)
  1. MIRALAX [Suspect]
     Active Substance: POLYETHYLENE GLYCOL 3350
     Indication: CONSTIPATION
     Dosage: ?          QUANTITY:.5 HALF A CAPFUL;?
     Route: 048
     Dates: start: 20180930, end: 20190104

REACTIONS (7)
  - Thinking abnormal [None]
  - Hyperarousal [None]
  - Aggression [None]
  - Inappropriate affect [None]
  - Insomnia [None]
  - Anger [None]
  - Educational problem [None]

NARRATIVE: CASE EVENT DATE: 20180930
